FAERS Safety Report 8864754 (Version 1)
Quarter: 2012Q4

REPORT INFORMATION
  Report Type: 
  Country: US (occurrence: US)
  Receive Date: 20121024
  Receipt Date: 20121024
  Transmission Date: 20130627
  Serious: No
  Sender: FDA-Public Use
  Company Number: US-AMGEN-USASP2011069025

PATIENT
  Age: 51 Year
  Sex: Male

DRUGS (5)
  1. ENBREL [Suspect]
     Indication: PRODUCT USED FOR UNKNOWN INDICATION
     Dosage: 50 mg, qwk
     Route: 058
  2. ZYRTEC [Concomitant]
     Dosage: 5 mg, UNK
  3. PRILOSEC [Concomitant]
     Dosage: 20 mg, UNK
  4. MULTIVITAMIN [Concomitant]
  5. FISH OIL [Concomitant]

REACTIONS (1)
  - Infection [Unknown]
